FAERS Safety Report 10262951 (Version 2)
Quarter: 2015Q1

REPORT INFORMATION
  Report Type: Spontaneous
  Country: US (occurrence: US)
  Receive Date: 20140626
  Receipt Date: 20150310
  Transmission Date: 20150720
  Serious: Yes (Congenital Anomaly, Other)
  Sender: FDA-Public Use
  Company Number: US-ELI_LILLY_AND_COMPANY-US201406007811

PATIENT

DRUGS (2)
  1. PROZAC [Suspect]
     Active Substance: FLUOXETINE HYDROCHLORIDE
     Indication: DEPRESSION
     Dosage: 20 MG, QD
     Route: 064
  2. ZOLOFT [Concomitant]
     Active Substance: SERTRALINE HYDROCHLORIDE
     Dosage: UNK
     Route: 064

REACTIONS (6)
  - Large for dates baby [Unknown]
  - Foetal exposure during pregnancy [Recovered/Resolved]
  - Spina bifida [Unknown]
  - Exposure during breast feeding [Unknown]
  - Meningomyelocele [Unknown]
  - Hydrocephalus [Unknown]
